FAERS Safety Report 9579710 (Version 1)
Quarter: 2013Q4

REPORT INFORMATION
  Report Type: Spontaneous
  Country: US (occurrence: US)
  Receive Date: 20131002
  Receipt Date: 20131002
  Transmission Date: 20140711
  Serious: No
  Sender: FDA-Public Use
  Company Number: US-BIOGENIDEC-2013BI092433

PATIENT
  Age: 32 Year
  Sex: Male

DRUGS (16)
  1. TYSABRI [Suspect]
     Indication: MULTIPLE SCLEROSIS
     Route: 042
     Dates: start: 20071102
  2. TYSABRI [Suspect]
     Indication: MULTIPLE SCLEROSIS
     Route: 042
     Dates: start: 201302
  3. SUPER B COMPLEX [Concomitant]
     Route: 048
  4. BACLOFEN [Concomitant]
  5. KEFLEX [Concomitant]
     Route: 048
  6. VITAMIN D [Concomitant]
     Route: 048
  7. FLORINEF [Concomitant]
     Route: 048
  8. RITALIN [Concomitant]
     Route: 048
  9. DITROPAN [Concomitant]
     Route: 048
  10. OXYCONTIN [Concomitant]
     Route: 048
  11. PERCOCET [Concomitant]
  12. DELTASONE [Concomitant]
     Route: 048
  13. GABAPENTIN [Concomitant]
  14. INDOMETHACIN [Concomitant]
     Route: 048
  15. MEDICAL MARIJUANA [Concomitant]
     Route: 048
  16. ZOLOFT [Concomitant]

REACTIONS (12)
  - Hypercoagulation [Not Recovered/Not Resolved]
  - Hearing impaired [Not Recovered/Not Resolved]
  - Protein S deficiency [Not Recovered/Not Resolved]
  - Optic neuritis [Not Recovered/Not Resolved]
  - Peroneal nerve palsy [Not Recovered/Not Resolved]
  - Gait disturbance [Not Recovered/Not Resolved]
  - Pain [Not Recovered/Not Resolved]
  - Anorgasmia [Not Recovered/Not Resolved]
  - Sleep apnoea syndrome [Not Recovered/Not Resolved]
  - Inguinal hernia [Unknown]
  - Urge incontinence [Unknown]
  - Gun shot wound [Recovered/Resolved]
